FAERS Safety Report 17610531 (Version 1)
Quarter: 2020Q1

REPORT INFORMATION
  Report Type: Spontaneous
  Country: US (occurrence: US)
  Receive Date: 20200330
  Receipt Date: 20200330
  Transmission Date: 20200409
  Serious: Yes (Death)
  Sender: FDA-Public Use
  Company Number: None

PATIENT
  Age: 49 Year
  Sex: Male

DRUGS (13)
  1. METFORMIN [Concomitant]
     Active Substance: METFORMIN HYDROCHLORIDE
  2. BACTRIM DS [Concomitant]
     Active Substance: SULFAMETHOXAZOLE\TRIMETHOPRIM
  3. METOPROLOL ER SUCCINATE [Concomitant]
     Active Substance: METOPROLOL SUCCINATE
  4. VERZENIO [Suspect]
     Active Substance: ABEMACICLIB
     Indication: BRAIN NEOPLASM
     Route: 048
     Dates: start: 20200220, end: 20200329
  5. MIRALAX [Concomitant]
     Active Substance: POLYETHYLENE GLYCOL 3350
  6. NOVOLOG [Concomitant]
     Active Substance: INSULIN ASPART
  7. DEXAMETHASONE. [Concomitant]
     Active Substance: DEXAMETHASONE
  8. CALCIUM 600+D [Concomitant]
     Active Substance: CALCIUM\VITAMIN D
  9. LANTUS SOLOSTART [Concomitant]
  10. LEVETIRACETAM 750MG [Concomitant]
     Active Substance: LEVETIRACETAM
  11. ONDANSETRON ODT 8 MG [Concomitant]
  12. ALLOPURINOL. [Concomitant]
     Active Substance: ALLOPURINOL
  13. LOPERAMIDE 2MG [Concomitant]
     Active Substance: LOPERAMIDE

REACTIONS (1)
  - Disease progression [None]

NARRATIVE: CASE EVENT DATE: 20200329
